FAERS Safety Report 22115630 (Version 2)
Quarter: 2023Q1

REPORT INFORMATION
  Report Type: Spontaneous
  Country: US (occurrence: US)
  Receive Date: 20230320
  Receipt Date: 20230322
  Transmission Date: 20230418
  Serious: Yes (Hospitalization)
  Sender: FDA-Public Use
  Company Number: US-009507513-2303USA002476

PATIENT
  Age: 60 Year
  Sex: Male

DRUGS (4)
  1. KEYTRUDA [Suspect]
     Active Substance: PEMBROLIZUMAB
     Indication: Malignant melanoma
     Dosage: UNK
     Route: 042
     Dates: start: 20230302
  2. BUDESONIDE [Suspect]
     Active Substance: BUDESONIDE
  3. YERVOY [Suspect]
     Active Substance: IPILIMUMAB
  4. OPDIVO [Suspect]
     Active Substance: NIVOLUMAB

REACTIONS (5)
  - Diarrhoea [Unknown]
  - Fatigue [Not Recovered/Not Resolved]
  - Ill-defined disorder [Unknown]
  - Headache [Unknown]
  - Tissue irritation [Unknown]

NARRATIVE: CASE EVENT DATE: 20230301
